FAERS Safety Report 4407525-3 (Version None)
Quarter: 2004Q3

REPORT INFORMATION
  Report Type: 
  Country: None (occurrence: None)
  Receive Date: 20040721
  Receipt Date: 20040708
  Transmission Date: 20050211
  Serious: Yes (Hospitalization)
  Sender: FDA-Public Use
  Company Number: 2004222816FR

PATIENT
  Age: 54 Year
  Sex: Male

DRUGS (2)
  1. CELEBREX [Suspect]
     Indication: ARTHRALGIA
     Dosage: SEE IMAGE
     Route: 048
     Dates: start: 20040501, end: 20040501
  2. CELEBREX [Suspect]
     Indication: ARTHRALGIA
     Dosage: SEE IMAGE
     Route: 048
     Dates: start: 20040617, end: 20040618

REACTIONS (4)
  - CHILLS [None]
  - NEUTROPENIA [None]
  - PYREXIA [None]
  - VIRAL INFECTION [None]
